FAERS Safety Report 5322174-0 (Version None)
Quarter: 2007Q2

REPORT INFORMATION
  Report Type: 
  Country: None (occurrence: None)
  Receive Date: 20070511
  Receipt Date: 20070430
  Transmission Date: 20071010
  Serious: Yes (Hospitalization)
  Sender: FDA-Public Use
  Company Number: US-AMGEN-US166562

PATIENT
  Sex: Male

DRUGS (7)
  1. PANITUMUMAB [Suspect]
     Indication: COLORECTAL CANCER
     Route: 042
     Dates: start: 20060116
  2. PANITUMUMAB [Suspect]
     Route: 042
     Dates: start: 20060306, end: 20060306
  3. AVASTIN [Suspect]
     Route: 042
  4. OXALIPLATIN [Suspect]
     Route: 042
  5. LEUCOVORIN CALCIUM [Suspect]
     Route: 042
  6. FLUOROURACIL [Suspect]
     Route: 042
     Dates: end: 20060308
  7. VICODIN [Concomitant]
     Route: 048

REACTIONS (2)
  - ABDOMINAL INFECTION [None]
  - LARGE INTESTINE PERFORATION [None]
